FAERS Safety Report 26196260 (Version 2)
Quarter: 2025Q4

REPORT INFORMATION
  Report Type: Report from Study
  Country: IL (occurrence: IL)
  Receive Date: 20251224
  Receipt Date: 20251231
  Transmission Date: 20260118
  Serious: Yes (Hospitalization)
  Sender: ABBVIE
  Company Number: IL-ABBVIE-6602423

PATIENT
  Age: 69 Year
  Sex: Female

DRUGS (3)
  1. CARBIDOPA [Suspect]
     Active Substance: CARBIDOPA
     Indication: Parkinson^s disease
     Dosage: MORNING DOSE 3.5 ML, ADDITIONAL FILLING 3.0ML, CONTINUOUS DOSE 3.8 ML/H, EXTRA DOSE 2.10 ML, NIGH...
     Route: 050
     Dates: start: 20250617, end: 20250617
  2. CARBIDOPA [Suspect]
     Active Substance: CARBIDOPA
     Route: 050
     Dates: start: 2025
  3. CARBIDOPA [Suspect]
     Active Substance: CARBIDOPA
     Route: 050
     Dates: start: 20210504

REACTIONS (1)
  - Hip fracture [Recovering/Resolving]
